FAERS Safety Report 6760132-X (Version None)
Quarter: 2010Q2

REPORT INFORMATION
  Report Type: 
  Country: None (occurrence: None)
  Receive Date: 20100608
  Receipt Date: 20100526
  Transmission Date: 20101027
  Serious: Yes (Other)
  Sender: FDA-Public Use
  Company Number: PHHY2010US21647

PATIENT
  Sex: Female

DRUGS (10)
  1. RECLAST [Suspect]
     Dosage: 5 MG
     Route: 042
     Dates: start: 20091120, end: 20091120
  2. DIAZEPAM [Concomitant]
  3. HYDROCODONE [Concomitant]
  4. SINGULAIR [Concomitant]
     Dosage: 10 MG, QD
  5. LISINOPRIL AND HYDROCHLOROTHIAZIDE [Concomitant]
     Dosage: 25/ 20 MG QD
  6. ESTRATEST [Concomitant]
  7. TONOPAN                            /00372304/ [Concomitant]
     Dosage: UNK
     Route: 048
  8. CYMBALTA [Concomitant]
     Dosage: 60 MG, QD
     Route: 048
  9. MICARDIS [Concomitant]
     Route: 048
  10. OMNARIS [Concomitant]
     Route: 048

REACTIONS (14)
  - BLOOD PRESSURE INCREASED [None]
  - CONJUNCTIVITIS [None]
  - EYE SWELLING [None]
  - FACIAL PAIN [None]
  - HEADACHE [None]
  - INTRAOCULAR PRESSURE INCREASED [None]
  - IRITIS [None]
  - LEFT ATRIAL DILATATION [None]
  - NASOPHARYNGITIS [None]
  - NAUSEA [None]
  - OCULAR HYPERAEMIA [None]
  - OEDEMA PERIPHERAL [None]
  - SINUS TACHYCARDIA [None]
  - SWELLING FACE [None]
